FAERS Safety Report 8371803-6 (Version None)
Quarter: 2012Q2

REPORT INFORMATION
  Report Type: 
  Country: None (occurrence: None)
  Receive Date: 20120518
  Receipt Date: 20120502
  Transmission Date: 20120825
  Serious: Yes (Other)
  Sender: FDA-Public Use
  Company Number: GB-BAXTER-2012BAX004575

PATIENT
  Sex: Male

DRUGS (1)
  1. EXTRANEAL [Suspect]

REACTIONS (3)
  - DEHYDRATION [None]
  - SYNCOPE [None]
  - HYPOTENSION [None]
